FAERS Safety Report 5464927-4 (Version None)
Quarter: 2007Q3

REPORT INFORMATION
  Report Type: 
  Country: None (occurrence: None)
  Receive Date: 20070921
  Receipt Date: 20070911
  Transmission Date: 20080115
  Serious: Yes (Other)
  Sender: FDA-Public Use
  Company Number: PT-PFIZER INC-2007076956

PATIENT
  Age: 52 Year
  Sex: Female

DRUGS (8)
  1. LYRICA [Suspect]
     Indication: NEURALGIA
     Route: 048
     Dates: start: 20070801, end: 20070814
  2. PREDNISOLONE [Concomitant]
     Route: 048
  3. ANTIINFLAMMATORY/ANTIRHEUMATIC NON-STEROIDS [Concomitant]
     Route: 048
  4. RENIDUR [Concomitant]
     Route: 048
  5. PANTOC [Concomitant]
     Route: 048
  6. SIRDALUD [Concomitant]
     Route: 048
  7. VIARTRIL S [Concomitant]
     Route: 048
  8. FOSAVANCE [Concomitant]

REACTIONS (5)
  - ABDOMINAL PAIN UPPER [None]
  - ACTIVITIES OF DAILY LIVING IMPAIRED [None]
  - OEDEMA [None]
  - PYREXIA [None]
  - TONGUE DRY [None]
